FAERS Safety Report 4505059-9 (Version None)
Quarter: 2005Q1

REPORT INFORMATION
  Report Type: 
  Country: None (occurrence: None)
  Receive Date: 20041015
  Receipt Date: 20040802
  Transmission Date: 20050727
  Serious: Yes (Other)
  Sender: FDA-Public Use
  Company Number: 2004052502

PATIENT
  Sex: Female
  Weight: 63.5036 kg

DRUGS (4)
  1. NEURONTIN [Suspect]
     Indication: POST HERPETIC NEURALGIA
     Dosage: 300 MG (300 MG 1 IN 1 D) ORAL
     Route: 048
     Dates: start: 20000901
  2. OXCARBAZEPINE (OXCARAZEPINE) [Suspect]
     Indication: POST HERPETIC NEURALGIA
     Dates: start: 20021201, end: 20030101
  3. ACETYLSALICYLIC ACID [Concomitant]
  4. LORAZEPAM [Concomitant]

REACTIONS (8)
  - BALANCE DISORDER [None]
  - BODY HEIGHT DECREASED [None]
  - BREAST CANCER [None]
  - DIZZINESS [None]
  - DYSKINESIA [None]
  - GASTRIC DISORDER [None]
  - PAIN [None]
  - WEIGHT DECREASED [None]
